FAERS Safety Report 7933358-7 (Version None)
Quarter: 2011Q4

REPORT INFORMATION
  Report Type: 
  Country: None (occurrence: None)
  Receive Date: 20111122
  Receipt Date: 20111122
  Transmission Date: 20120403
  Serious: No
  Sender: FDA-Public Use
  Company Number: None

PATIENT
  Age: 48 Year
  Sex: Female
  Weight: 68.038 kg

DRUGS (1)
  1. ATIVAN [Suspect]
     Dosage: 0.5MG

REACTIONS (6)
  - ADVERSE DRUG REACTION [None]
  - FEAR [None]
  - PAIN IN EXTREMITY [None]
  - FEELING ABNORMAL [None]
  - MUSCLE SPASMS [None]
  - NERVE INJURY [None]
